FAERS Safety Report 8276706-3 (Version None)
Quarter: 2012Q2

REPORT INFORMATION
  Report Type: 
  Country: None (occurrence: None)
  Receive Date: 20120412
  Receipt Date: 20120412
  Transmission Date: 20120825
  Serious: No
  Sender: FDA-Public Use
  Company Number: None

PATIENT
  Age: 60 Year
  Sex: Female
  Weight: 62.142 kg

DRUGS (1)
  1. PROLIA [Suspect]

REACTIONS (6)
  - PAIN IN EXTREMITY [None]
  - ACTIVITIES OF DAILY LIVING IMPAIRED [None]
  - PARAESTHESIA [None]
  - SLEEP DISORDER [None]
  - MOVEMENT DISORDER [None]
  - HYPOAESTHESIA [None]
